FAERS Safety Report 25955454 (Version 1)
Quarter: 2025Q4

REPORT INFORMATION
  Report Type: Spontaneous
  Country: EU (occurrence: EU)
  Receive Date: 20251024
  Receipt Date: 20251024
  Transmission Date: 20260117
  Serious: Yes (Other)
  Sender: BAXTER
  Company Number: None

PATIENT
  Age: 65 Year
  Sex: Female
  Weight: 62 kg

DRUGS (1)
  1. SUPRANE [Suspect]
     Active Substance: DESFLURANE
     Indication: Tooth extraction
     Dosage: INHALATION VAPOUR, LIQUID
     Dates: start: 20251003, end: 20251003

REACTIONS (1)
  - Pain [Not Recovered/Not Resolved]

NARRATIVE: CASE EVENT DATE: 20251003
